FAERS Safety Report 6700261-X (Version None)
Quarter: 2010Q2

REPORT INFORMATION
  Report Type: 
  Country: None (occurrence: None)
  Receive Date: 20100428
  Receipt Date: 20100423
  Transmission Date: 20101027
  Serious: Yes (Other)
  Sender: FDA-Public Use
  Company Number: GB-PFIZER INC-2010043726

PATIENT
  Age: 85 Year
  Sex: Female

DRUGS (14)
  1. TOVIAZ [Suspect]
     Indication: HYPERTONIC BLADDER
     Dosage: 4 MG, 1X/DAY
  2. BUTRANS [Suspect]
     Dosage: UNK
  3. MORPHINE [Concomitant]
     Dosage: UNK
     Route: 062
  4. DIAZEPAM [Concomitant]
     Dosage: UNK
  5. NITROFURANTOIN [Concomitant]
     Dosage: UNK
  6. ALENDRONIC ACID [Concomitant]
     Dosage: UNK
  7. CALCIUM CARBONATE [Concomitant]
     Dosage: UNK
  8. RIVASTIGMINE [Concomitant]
     Dosage: UNK
  9. DORZOLAMIDE [Concomitant]
     Dosage: UNK
  10. WARFARIN [Concomitant]
     Dosage: UNK
  11. CITALOPRAM [Concomitant]
     Dosage: UNK
  12. PARACETAMOL [Concomitant]
     Dosage: UNK
  13. LANSOPRAZOLE [Concomitant]
     Dosage: UNK
  14. QUETIAPINE [Concomitant]
     Dosage: UNK

REACTIONS (1)
  - HYPOTENSION [None]
